FAERS Safety Report 11683376 (Version 1)
Quarter: 2015Q4

REPORT INFORMATION
  Report Type: Spontaneous
  Country: US (occurrence: US)
  Receive Date: 20151029
  Receipt Date: 20151029
  Transmission Date: 20160304
  Serious: No
  Sender: FDA-Public Use
  Company Number: US-LUNDBECK-DKLU2004431

PATIENT
  Age: 59 Year
  Sex: Male

DRUGS (2)
  1. NORTHERA [Suspect]
     Active Substance: DROXIDOPA
     Indication: DIZZINESS
     Route: 065
     Dates: start: 20150914
  2. NORTHERA [Suspect]
     Active Substance: DROXIDOPA
     Indication: VISION BLURRED

REACTIONS (3)
  - Heart rate increased [Unknown]
  - Feeling hot [Unknown]
  - Vomiting [Unknown]

NARRATIVE: CASE EVENT DATE: 20150918
